FAERS Safety Report 7981276-0 (Version None)
Quarter: 2011Q4

REPORT INFORMATION
  Report Type: 
  Country: None (occurrence: None)
  Receive Date: 20111215
  Receipt Date: 20111205
  Transmission Date: 20120403
  Serious: Yes (Other)
  Sender: FDA-Public Use
  Company Number: US-BAYER-2011-061324

PATIENT
  Age: 24 Year
  Sex: Female
  Weight: 71.655 kg

DRUGS (3)
  1. YAZ [Suspect]
     Dosage: UNK
     Dates: start: 20090401, end: 20090701
  2. NAPROXEN (ALEVE) [Concomitant]
  3. VALTREX [Concomitant]
     Indication: HERPES VIRUS INFECTION
     Dosage: UNK
     Dates: start: 20030101

REACTIONS (6)
  - BILIARY COLIC [None]
  - CHOLELITHIASIS [None]
  - PAIN [None]
  - INJURY [None]
  - GALLBLADDER DISORDER [None]
  - CHOLECYSTITIS [None]
